FAERS Safety Report 17885686 (Version 1)
Quarter: 2020Q2

REPORT INFORMATION
  Report Type: Spontaneous
  Country: US (occurrence: US)
  Receive Date: 20200611
  Receipt Date: 20200611
  Transmission Date: 20200714
  Serious: No
  Sender: FDA-Public Use
  Company Number: US-BIOVITRUM-2020US3070

PATIENT
  Sex: Male
  Weight: 11 kg

DRUGS (12)
  1. SYNAGIS [Suspect]
     Active Substance: PALIVIZUMAB
     Indication: PREMATURE BABY
     Route: 030
  2. CREON [Concomitant]
     Active Substance: PANCRELIPASE AMYLASE\PANCRELIPASE LIPASE\PANCRELIPASE PROTEASE
     Dosage: 12K-38K-60 CAPSULE DR
  3. SYNAGIS [Suspect]
     Active Substance: PALIVIZUMAB
     Indication: CYSTIC FIBROSIS
  4. AQUADEKS [Concomitant]
     Active Substance: MINERALS\VITAMINS
  5. ORKAMBI [Concomitant]
     Active Substance: IVACAFTOR\LUMACAFTOR
  6. ALBUTEROL SULFATE. [Concomitant]
     Active Substance: ALBUTEROL SULFATE
  7. ORKAMBI [Concomitant]
     Active Substance: IVACAFTOR\LUMACAFTOR
  8. TYLENOL [Concomitant]
     Active Substance: ACETAMINOPHEN
  9. SYNAGIS [Suspect]
     Active Substance: PALIVIZUMAB
     Indication: FAILURE TO THRIVE
  10. MOTRIN [Concomitant]
     Active Substance: IBUPROFEN
  11. HYPER-SAL [Concomitant]
     Active Substance: SODIUM CHLORIDE
  12. PULMOZYME [Concomitant]
     Active Substance: DORNASE ALFA

REACTIONS (1)
  - Cough [Unknown]
